FAERS Safety Report 9210437 (Version 3)
Quarter: 2013Q3

REPORT INFORMATION
  Report Type: Spontaneous
  Country: US (occurrence: US)
  Receive Date: 20130404
  Receipt Date: 20130717
  Transmission Date: 20140515
  Serious: No
  Sender: FDA-Public Use
  Company Number: US-009507513-1304USA000838

PATIENT
  Age: 23 Year
  Sex: Female
  Weight: 47.62 kg

DRUGS (2)
  1. IMPLANON [Suspect]
     Indication: CONTRACEPTION
     Dosage: 1 DF, UNK
     Route: 059
     Dates: start: 201210, end: 20130408
  2. IMPLANON [Suspect]
     Dosage: 1 DF, UNK
     Route: 059
     Dates: end: 201210

REACTIONS (10)
  - Metrorrhagia [Unknown]
  - Medical device complication [Unknown]
  - Device difficult to use [Recovered/Resolved]
  - Device deployment issue [Recovered/Resolved]
  - Mood swings [Unknown]
  - Implant site scar [Unknown]
  - Implant site fibrosis [Unknown]
  - Device deployment issue [Recovered/Resolved]
  - Device dislocation [Recovered/Resolved]
  - Hypomenorrhoea [Not Recovered/Not Resolved]
